FAERS Safety Report 10136374 (Version 3)
Quarter: 2021Q4

REPORT INFORMATION
  Report Type: Report from Study
  Country: US (occurrence: US)
  Receive Date: 20140429
  Receipt Date: 20211122
  Transmission Date: 20220303
  Serious: Yes (Death, Life-Threatening, Hospitalization)
  Sender: FDA-Public Use
  Company Number: US-JNJFOC-20140414015

PATIENT
  Age: 79 Year
  Sex: Female
  Weight: 68.100 kg

DRUGS (2)
  1. REMICADE [Suspect]
     Active Substance: INFLIXIMAB
     Indication: Psoriasis
     Route: 042
     Dates: start: 200711, end: 20090825
  2. REMICADE [Suspect]
     Active Substance: INFLIXIMAB
     Route: 042
     Dates: start: 200912, end: 20110103

REACTIONS (2)
  - Intestinal obstruction [Fatal]
  - Blood loss anaemia [Not Recovered/Not Resolved]

NARRATIVE: CASE EVENT DATE: 20131213
